FAERS Safety Report 18601835 (Version 1)
Quarter: 2020Q4

REPORT INFORMATION
  Report Type: Report from Study
  Country: CA (occurrence: CA)
  Receive Date: 20201210
  Receipt Date: 20201210
  Transmission Date: 20210114
  Serious: Yes (Hospitalization, Other)
  Sender: FDA-Public Use
  Company Number: CA-SHIRE-CA202018772AA

PATIENT
  Age: 73 Year
  Sex: Male
  Weight: 93 kg

DRUGS (2)
  1. VELAGLUCERASE ALFA [Suspect]
     Active Substance: VELAGLUCERASE ALFA
     Indication: GAUCHER^S DISEASE
     Dosage: 3600 INTERNATIONAL UNIT OR 9 VIALS FULL, 1X/2WKS
     Route: 065
     Dates: start: 20120101
  2. VELAGLUCERASE ALFA [Suspect]
     Active Substance: VELAGLUCERASE ALFA
     Dosage: 3600 INTERNATIONAL UNIT OR 9 VIALS FULL, 1X/2WKS
     Route: 065
     Dates: start: 20120101

REACTIONS (8)
  - Fatigue [Not Recovered/Not Resolved]
  - Nephrolithiasis [Recovered/Resolved with Sequelae]
  - Chondrocalcinosis pyrophosphate [Unknown]
  - Abdominal pain [Not Recovered/Not Resolved]
  - Cellulitis [Unknown]
  - Bone pain [Not Recovered/Not Resolved]
  - Thrombosis [Unknown]
  - Weight fluctuation [Not Recovered/Not Resolved]

NARRATIVE: CASE EVENT DATE: 2020
